FAERS Safety Report 18334882 (Version 5)
Quarter: 2020Q4

REPORT INFORMATION
  Report Type: Report from Study
  Country: US (occurrence: US)
  Receive Date: 20201001
  Receipt Date: 20201211
  Transmission Date: 20210113
  Serious: Yes (Hospitalization, Other)
  Sender: FDA-Public Use
  Company Number: US-PFIZER INC-2020361625

PATIENT
  Age: 46 Year
  Sex: Female
  Weight: 96 kg

DRUGS (13)
  1. LAMOTRIGINE. [Concomitant]
     Active Substance: LAMOTRIGINE
     Dosage: 200 MG, 1X/DAY
     Dates: start: 201201
  2. OXYBUTYNIN. [Concomitant]
     Active Substance: OXYBUTYNIN CHLORIDE
     Dosage: 10 MG, 1X/DAY
  3. NEXPLANON [Concomitant]
     Active Substance: ETONOGESTREL
     Dosage: UNK
     Dates: start: 2019
  4. ALBUTEROL [SALBUTAMOL] [Concomitant]
     Active Substance: ALBUTEROL
     Dosage: RESCUE INHALER, AS NEEDED
     Route: 055
     Dates: start: 200001
  5. ARTIFICIAL TEARS [PROPYLENE GLYCOL] [Concomitant]
     Dosage: UNK
     Dates: start: 20200822
  6. AVELUMAB [Suspect]
     Active Substance: AVELUMAB
     Indication: MALIGNANT NEOPLASM OF THYMUS
     Dosage: 10 MG/KG (958 MG) , CYCLIC (ONCE IN TWO WEEKS)
     Route: 042
     Dates: start: 20200701
  7. DITROPAN [Concomitant]
     Active Substance: OXYBUTYNIN CHLORIDE
     Dosage: UNK
     Dates: start: 201401
  8. BUPROPION. [Concomitant]
     Active Substance: BUPROPION
     Dosage: 3 DF, 1X/DAY
     Route: 048
     Dates: start: 201201
  9. ACETAMINOPHEN. [Concomitant]
     Active Substance: ACETAMINOPHEN
     Dosage: UNK
     Dates: start: 20200701
  10. AVELUMAB [Suspect]
     Active Substance: AVELUMAB
     Dosage: 10 MG/KG (958), CYCLIC (ONCE IN TWO WEEKS)
     Route: 042
     Dates: start: 20200826, end: 20200826
  11. AVELUMAB [Suspect]
     Active Substance: AVELUMAB
     Dosage: UNK
     Route: 042
     Dates: start: 20200923
  12. METOPROLOL SUCCINATE. [Suspect]
     Active Substance: METOPROLOL SUCCINATE
     Dosage: 50 MG, 1X/DAY
     Dates: start: 2012, end: 20200909
  13. DIPHENHYDRAMINE. [Concomitant]
     Active Substance: DIPHENHYDRAMINE
     Dosage: UNK
     Dates: start: 20200701

REACTIONS (2)
  - Conduction disorder [Recovered/Resolved]
  - Cardiac pacemaker insertion [Recovered/Resolved]

NARRATIVE: CASE EVENT DATE: 20200909
